FAERS Safety Report 17692062 (Version 1)
Quarter: 2020Q2

REPORT INFORMATION
  Report Type: Report from Study
  Country: DE (occurrence: CN)
  Receive Date: 20200422
  Receipt Date: 20200422
  Transmission Date: 20200714
  Serious: Yes (Other)
  Sender: FDA-Public Use
  Company Number: CN-ELI_LILLY_AND_COMPANY-CN202004007704

PATIENT
  Age: 75 Year
  Sex: Male

DRUGS (6)
  1. CAPECITABINE. [Concomitant]
     Active Substance: CAPECITABINE
     Indication: COLON CANCER STAGE IV
     Dosage: UNK
     Route: 048
  2. OXALIPLATIN. [Concomitant]
     Active Substance: OXALIPLATIN
     Indication: COLON CANCER STAGE IV
     Dosage: 120 MG, UNK
     Dates: start: 20171130
  3. FLUOROURACIL. [Concomitant]
     Active Substance: FLUOROURACIL
     Indication: COLON CANCER STAGE IV
     Dosage: 0.5 G, UNKNOWN
     Route: 040
     Dates: start: 20171130
  4. CETUXIMAB. [Suspect]
     Active Substance: CETUXIMAB
     Indication: COLON CANCER STAGE IV
     Dosage: 800 MG, UNKNOWN
     Route: 065
     Dates: start: 20171130
  5. LEUCOVORIN CALCIUM. [Concomitant]
     Active Substance: LEUCOVORIN CALCIUM
     Indication: COLON CANCER STAGE IV
     Dosage: 200 MG, UNK
     Dates: start: 20171130
  6. FLUOROURACIL. [Concomitant]
     Active Substance: FLUOROURACIL
     Dosage: 3.5 G, UNKNOWN
     Route: 042
     Dates: start: 20171130

REACTIONS (4)
  - Off label use [Unknown]
  - White blood cell count decreased [Recovering/Resolving]
  - Febrile neutropenia [Recovering/Resolving]
  - Bone marrow failure [Recovering/Resolving]
